FAERS Safety Report 10733764 (Version 15)
Quarter: 2016Q3

REPORT INFORMATION
  Report Type: Report from Study
  Country: BE (occurrence: BE)
  Receive Date: 20150123
  Receipt Date: 20160815
  Transmission Date: 20161109
  Serious: Yes (Death, Hospitalization)
  Sender: FDA-Public Use
  Company Number: BE-ABBVIE-14P-013-1298691-00

PATIENT
  Age: 73 Year
  Sex: Male

DRUGS (15)
  1. ACETYLSALICYLIC ACID [Concomitant]
     Active Substance: ASPIRIN
     Indication: PRODUCT USED FOR UNKNOWN INDICATION
  2. ALUMINIUM OXIDE [Concomitant]
     Indication: PRODUCT USED FOR UNKNOWN INDICATION
  3. STALEVO [Concomitant]
     Active Substance: CARBIDOPA\ENTACAPONE\LEVODOPA
     Indication: PARKINSON^S DISEASE
     Dosage: 50/12.5/200 MG, EMERGENCY MEDICATION: 3 IN 1 DAY
  4. DUODOPA [Suspect]
     Active Substance: CARBIDOPA\LEVODOPA
     Dosage: CONTINUOUSLY MONITORED AND ADAPTED
     Route: 050
     Dates: start: 20130607, end: 20140510
  5. DUODOPA [Suspect]
     Active Substance: CARBIDOPA\LEVODOPA
     Dosage: AM = 2 ML, CD = 2.2 ML/H DURING 16H, ED = 1 ML
     Route: 050
     Dates: start: 20140510, end: 20141024
  6. DUODOPA [Suspect]
     Active Substance: CARBIDOPA\LEVODOPA
     Dosage: AM = 2 ML, CD = 2 ML/H DURING 16H, ED = 1 ML
     Route: 050
     Dates: start: 20141024, end: 20141123
  7. DUODOPA [Suspect]
     Active Substance: CARBIDOPA\LEVODOPA
     Dosage: AM = 2 ML, CD = 1.9 ML/H DURING 16H, ED = 1 ML
     Route: 050
     Dates: start: 20141123, end: 20141210
  8. DUODOPA [Suspect]
     Active Substance: CARBIDOPA\LEVODOPA
     Dosage: AM = 2 ML, CD = 2.3 ML/H DURING 16H, ED = 1 ML
     Route: 050
     Dates: start: 20141210, end: 20151011
  9. DUODOPA [Suspect]
     Active Substance: CARBIDOPA\LEVODOPA
     Dosage: AM=2ML ; CD=2.3ML/HR DURING 16HRS ; ED=1ML
     Route: 050
     Dates: start: 20151012, end: 20160212
  10. DUODOPA [Suspect]
     Active Substance: CARBIDOPA\LEVODOPA
     Route: 050
     Dates: start: 20160212, end: 20160427
  11. DUODOPA [Suspect]
     Active Substance: CARBIDOPA\LEVODOPA
     Dosage: AM=2ML; CD=2.4ML/HR DURING 16HRS; ED=1ML
     Route: 050
     Dates: start: 20151011, end: 20151012
  12. DUODOPA [Suspect]
     Active Substance: CARBIDOPA\LEVODOPA
     Dosage: AM=2 ML; CD=2.1 ML/H DURING 16 HRS; ED=1 ML
     Route: 050
     Dates: start: 20160510
  13. DIPIPERON [Concomitant]
     Active Substance: PIPAMPERONE
     Indication: PRODUCT USED FOR UNKNOWN INDICATION
     Route: 065
  14. DUODOPA [Suspect]
     Active Substance: CARBIDOPA\LEVODOPA
     Indication: PARKINSON^S DISEASE
     Dosage: AM = 3.5 ML, CD = 1.4 ML/H DURING 16H, ED = 1 ML
     Route: 050
     Dates: start: 20130603, end: 20130607
  15. DUODOPA [Suspect]
     Active Substance: CARBIDOPA\LEVODOPA
     Dosage: AM= 2.5 ML; CD= 2.1 ML/H DURING 16 HRS; ED= 1 ML
     Route: 050
     Dates: start: 20160427, end: 20160510

REACTIONS (13)
  - Freezing phenomenon [Recovered/Resolved]
  - On and off phenomenon [Recovering/Resolving]
  - Agitation [Recovering/Resolving]
  - Cognitive disorder [Recovering/Resolving]
  - Dyskinesia [Recovering/Resolving]
  - Dyskinesia [Recovering/Resolving]
  - Communication disorder [Unknown]
  - Agitation [Unknown]
  - Death [Fatal]
  - Dystonia [Recovering/Resolving]
  - Device dislocation [Recovered/Resolved]
  - Confusional state [Recovering/Resolving]
  - Parkinson^s disease [Recovering/Resolving]

NARRATIVE: CASE EVENT DATE: 201604
